FAERS Safety Report 18382795 (Version 1)
Quarter: 2020Q4

REPORT INFORMATION
  Report Type: Spontaneous
  Country: US (occurrence: US)
  Receive Date: 20201014
  Receipt Date: 20201014
  Transmission Date: 20210114
  Serious: No
  Sender: FDA-Public Use
  Company Number: US-PFIZER INC-2020394751

PATIENT
  Sex: Female

DRUGS (2)
  1. DOXYCYCLINE HYCLATE. [Suspect]
     Active Substance: DOXYCYCLINE HYCLATE
     Dosage: UNK
  2. GELUSIL [ALMASILATE] [Interacting]
     Active Substance: ALMASILATE
     Dosage: UNK

REACTIONS (2)
  - Product residue present [Unknown]
  - Drug interaction [Unknown]
